FAERS Safety Report 7034755-7 (Version None)
Quarter: 2010Q4

REPORT INFORMATION
  Report Type: 
  Country: None (occurrence: None)
  Receive Date: 20101008
  Receipt Date: 20100928
  Transmission Date: 20110411
  Serious: Yes (Hospitalization, Other)
  Sender: FDA-Public Use
  Company Number: PHHO2010US14379

PATIENT
  Sex: Female
  Weight: 87.982 kg

DRUGS (2)
  1. CERTICAN [Suspect]
     Indication: RENAL TRANSPLANT
     Dosage: 1.25 MG, BID
     Route: 048
     Dates: start: 20070723, end: 20100915
  2. NEORAL [Concomitant]
     Indication: RENAL TRANSPLANT
     Dosage: UNK
     Route: 048
     Dates: start: 20080427

REACTIONS (4)
  - ABDOMINAL HERNIA [None]
  - CELLULITIS [None]
  - IMPAIRED HEALING [None]
  - WOUND COMPLICATION [None]
